FAERS Safety Report 9517085 (Version 1)
Quarter: 2013Q3

REPORT INFORMATION
  Report Type: Spontaneous
  Country: US (occurrence: US)
  Receive Date: 20130911
  Receipt Date: 20130911
  Transmission Date: 20140515
  Serious: No
  Sender: FDA-Public Use
  Company Number: US-PFIZER INC-2013260772

PATIENT
  Sex: Female

DRUGS (3)
  1. LYRICA [Suspect]
     Indication: NEURALGIA
     Dosage: UNK
  2. LYRICA [Suspect]
     Dosage: 150 MG, UNK
  3. OXYCONTIN [Concomitant]
     Dosage: 5 MG, UNK

REACTIONS (2)
  - Somnolence [Unknown]
  - Drug intolerance [Unknown]
